FAERS Safety Report 6992770-3 (Version None)
Quarter: 2010Q3

REPORT INFORMATION
  Report Type: 
  Country: None (occurrence: None)
  Receive Date: 20100917
  Receipt Date: 20100913
  Transmission Date: 20110219
  Serious: Yes (Hospitalization)
  Sender: FDA-Public Use
  Company Number: A0866787A

PATIENT
  Age: 53 Year
  Sex: Female

DRUGS (9)
  1. ADVAIR DISKUS 100/50 [Suspect]
     Indication: CHRONIC OBSTRUCTIVE PULMONARY DISEASE
     Dosage: 1PUFF TWICE PER DAY
     Route: 055
  2. FLONASE [Suspect]
     Indication: UPPER-AIRWAY COUGH SYNDROME
     Dosage: 1SPR TWICE PER DAY
     Route: 045
  3. FLUTICASONE PROPIONATE [Suspect]
     Indication: UPPER-AIRWAY COUGH SYNDROME
     Dosage: 1SPR TWICE PER DAY
     Route: 045
  4. FLUTICASONE PROPIONATE [Suspect]
     Dosage: 1SPR TWICE PER DAY
     Route: 045
  5. ZYFLO [Concomitant]
  6. CIPRODEX [Concomitant]
  7. ZYRTEC [Concomitant]
  8. AVAILNEX [Concomitant]
  9. VITAMINS [Concomitant]

REACTIONS (7)
  - APHASIA [None]
  - COUGH [None]
  - DYSPHONIA [None]
  - FATIGUE [None]
  - LARYNGITIS [None]
  - OROPHARYNGEAL DISCOMFORT [None]
  - SPEECH DISORDER [None]
